FAERS Safety Report 10023520 (Version 1)
Quarter: 2013Q4

REPORT INFORMATION
  Report Type: Spontaneous
  Country: ES (occurrence: None)
  Receive Date: 20131231
  Receipt Date: 20131231
  Transmission Date: 20140711
  Serious: Yes (Other)
  Sender: FDA-Public Use
  Company Number: E2B_7258859

PATIENT
  Age: 70 Year
  Sex: Female

DRUGS (3)
  1. EUTIROX [Suspect]
     Indication: HYPOTHYROIDISM
     Route: 048
     Dates: start: 20131028, end: 20131107
  2. METFORMIN (METFORMIN) (METFORMIN) [Concomitant]
  3. FOLI DOCE (FOLGAMMA /00349401/) (FOLIC ACID CYANOCOBALAMIN) [Concomitant]

REACTIONS (3)
  - Balance disorder [None]
  - Myalgia [None]
  - Chest pain [None]
